FAERS Safety Report 5149934-3 (Version None)
Quarter: 2006Q4

REPORT INFORMATION
  Report Type: 
  Country: None (occurrence: None)
  Receive Date: 20061113
  Receipt Date: 20061107
  Transmission Date: 20070319
  Serious: Yes (Other)
  Sender: FDA-Public Use
  Company Number: KR-BOEHRINGER INGELHEIM PHARMACEUTICALS, INC.-2006-BP-13149YA

PATIENT
  Sex: Male

DRUGS (6)
  1. HARNAL (TAMSULOSIN) ORODISPERSABLE CR [Suspect]
     Indication: BENIGN PROSTATIC HYPERPLASIA
     Route: 048
     Dates: start: 20061025
  2. HARNAL (TAMSULOSIN) ORODISPERSABLE CR [Suspect]
     Indication: DYSURIA
  3. HARNAL [Suspect]
     Route: 048
     Dates: end: 20061024
  4. HARNAL [Suspect]
     Route: 048
     Dates: start: 20061001
  5. PROSCAR [Concomitant]
     Route: 065
  6. URO-VAXOM [Concomitant]
     Route: 065

REACTIONS (2)
  - CHEST DISCOMFORT [None]
  - DYSPNOEA [None]
